FAERS Safety Report 25440392 (Version 1)
Quarter: 2025Q2

REPORT INFORMATION
  Report Type: Spontaneous
  Country: US (occurrence: US)
  Receive Date: 20250616
  Receipt Date: 20250616
  Transmission Date: 20250716
  Serious: Yes (Other)
  Sender: MYLAN
  Company Number: US-MYLANLABS-2025M1050427

PATIENT
  Age: 40 Year
  Sex: Male

DRUGS (16)
  1. FENTANYL [Suspect]
     Active Substance: FENTANYL
     Indication: Product used for unknown indication
  2. FENTANYL [Suspect]
     Active Substance: FENTANYL
     Route: 065
  3. FENTANYL [Suspect]
     Active Substance: FENTANYL
     Route: 065
  4. FENTANYL [Suspect]
     Active Substance: FENTANYL
  5. ALCOHOL [Suspect]
     Active Substance: ALCOHOL
     Indication: Product used for unknown indication
  6. ALCOHOL [Suspect]
     Active Substance: ALCOHOL
     Route: 065
  7. ALCOHOL [Suspect]
     Active Substance: ALCOHOL
     Route: 065
  8. ALCOHOL [Suspect]
     Active Substance: ALCOHOL
  9. OXYCODONE [Suspect]
     Active Substance: OXYCODONE
     Indication: Product used for unknown indication
  10. OXYCODONE [Suspect]
     Active Substance: OXYCODONE
     Route: 065
  11. OXYCODONE [Suspect]
     Active Substance: OXYCODONE
     Route: 065
  12. OXYCODONE [Suspect]
     Active Substance: OXYCODONE
  13. HEROIN [Suspect]
     Active Substance: DIAMORPHINE
     Indication: Product used for unknown indication
  14. HEROIN [Suspect]
     Active Substance: DIAMORPHINE
     Route: 065
  15. HEROIN [Suspect]
     Active Substance: DIAMORPHINE
     Route: 065
  16. HEROIN [Suspect]
     Active Substance: DIAMORPHINE

REACTIONS (1)
  - Drug abuse [Unknown]
